FAERS Safety Report 6241076-9 (Version None)
Quarter: 2009Q2

REPORT INFORMATION
  Report Type: 
  Country: None (occurrence: None)
  Receive Date: 20090623
  Receipt Date: 20090618
  Transmission Date: 20091009
  Serious: Yes (Hospitalization)
  Sender: FDA-Public Use
  Company Number: KZ-JNJFOC-20090607254

PATIENT
  Sex: Male
  Weight: 70 kg

DRUGS (5)
  1. PALIPERIDONE [Suspect]
     Indication: SCHIZOPHRENIA
     Route: 048
  2. LEVOMEPROMAZINE [Suspect]
     Indication: SCHIZOPHRENIA
     Route: 048
  3. FLUOXETINE HCL [Concomitant]
     Indication: DEPRESSION
     Route: 048
  4. CLOZAPINE [Concomitant]
     Indication: ANXIETY
     Route: 048
  5. CYCLODOL [Concomitant]
     Indication: PROPHYLAXIS
     Route: 048

REACTIONS (2)
  - DELIRIUM [None]
  - SCHIZOPHRENIA [None]
